FAERS Safety Report 9213136 (Version 1)
Quarter: 2013Q2

REPORT INFORMATION
  Report Type: Spontaneous
  Country: US (occurrence: None)
  Receive Date: 20130403
  Receipt Date: 20130403
  Transmission Date: 20140414
  Serious: Yes (Other)
  Sender: FDA-Public Use
  Company Number: None

PATIENT
  Age: 33 Year
  Sex: Female
  Weight: 58.97 kg

DRUGS (1)
  1. CHLORHEXIDINE [Suspect]
     Indication: PREOPERATIVE CARE
     Dates: start: 20130327, end: 20130327

REACTIONS (2)
  - Rash pruritic [None]
  - Rash papular [None]
